FAERS Safety Report 10576351 (Version 1)
Quarter: 2014Q4

REPORT INFORMATION
  Report Type: Spontaneous
  Country: GB (occurrence: GB)
  Receive Date: 20141111
  Receipt Date: 20141111
  Transmission Date: 20150529
  Serious: Yes (Disabling)
  Sender: FDA-Public Use
  Company Number: GB-TEVA-520157ISR

PATIENT
  Age: 65 Year
  Sex: Female

DRUGS (1)
  1. SIMVASTATIN. [Suspect]
     Active Substance: SIMVASTATIN
     Indication: BLOOD CHOLESTEROL INCREASED
     Dosage: 40 UNITS NOT PROVIDED
     Route: 048

REACTIONS (10)
  - Activities of daily living impaired [Unknown]
  - Psychiatric symptom [Unknown]
  - Muscular weakness [Unknown]
  - Myalgia [Unknown]
  - Self esteem decreased [Unknown]
  - Dizziness [Unknown]
  - Balance disorder [Unknown]
  - Fatigue [Unknown]
  - Drug intolerance [Unknown]
  - Feeling abnormal [Unknown]
